FAERS Safety Report 19177527 (Version 2)
Quarter: 2021Q4

REPORT INFORMATION
  Report Type: Spontaneous
  Country: US (occurrence: US)
  Receive Date: 20210425
  Receipt Date: 20211222
  Transmission Date: 20220303
  Serious: Yes (Other)
  Sender: FDA-Public Use
  Company Number: US-JNJFOC-20210435538

PATIENT
  Age: 59 Year
  Sex: Female

DRUGS (1)
  1. AVEENO DAILY MOISTURIZING [Suspect]
     Active Substance: DIMETHICONE
     Indication: Dry skin prophylaxis
     Dosage: 1 TO 2 PUMPS EVERY NIGHT
     Route: 061

REACTIONS (1)
  - Burns third degree [Not Recovered/Not Resolved]

NARRATIVE: CASE EVENT DATE: 20210408
